FAERS Safety Report 4840623-9 (Version None)
Quarter: 2005Q4

REPORT INFORMATION
  Report Type: 
  Country: None (occurrence: None)
  Receive Date: 20051130
  Receipt Date: 20051124
  Transmission Date: 20060501
  Serious: Yes (Death, Hospitalization)
  Sender: FDA-Public Use
  Company Number: 2005SE06802

PATIENT
  Age: 62 Year
  Sex: Female

DRUGS (4)
  1. METOPROLOL SUCCINATE [Suspect]
     Indication: CARDIAC DISORDER
     Dosage: LONG-TERM TREATMENT
     Route: 048
  2. CORDARONE [Suspect]
     Indication: CARDIAC DISORDER
     Route: 048
     Dates: start: 20050420
  3. STILNOCT [Concomitant]
  4. WARAN [Concomitant]

REACTIONS (2)
  - ARRHYTHMIA [None]
  - ATRIAL FLUTTER [None]
